FAERS Safety Report 8515951-6 (Version None)
Quarter: 2012Q3

REPORT INFORMATION
  Report Type: 
  Country: None (occurrence: None)
  Receive Date: 20120717
  Receipt Date: 20120713
  Transmission Date: 20120928
  Serious: No
  Sender: FDA-Public Use
  Company Number: US-B.I. PHARMACEUTICALS,INC./RIDGEFIELD-2012-BP-15723BP

PATIENT
  Sex: Male

DRUGS (5)
  1. PRADAXA [Suspect]
     Indication: ATRIAL FIBRILLATION
     Dosage: 150 MG
     Route: 048
     Dates: start: 20110101, end: 20120601
  2. ASPIRIN [Concomitant]
     Indication: CARDIAC DISORDER
  3. AMIODARONE HCL [Concomitant]
     Indication: CARDIAC DISORDER
  4. FISH OIL [Concomitant]
  5. METOPROLOL TARTRATE [Concomitant]
     Indication: BLOOD PRESSURE

REACTIONS (2)
  - PRURITUS [None]
  - BACK PAIN [None]
